FAERS Safety Report 24238853 (Version 9)
Quarter: 2025Q4

REPORT INFORMATION
  Report Type: Spontaneous
  Country: JP (occurrence: JP)
  Receive Date: 20240822
  Receipt Date: 20251107
  Transmission Date: 20260118
  Serious: Yes (Death, Life-Threatening, Hospitalization, Other)
  Sender: ALEXION PHARMACEUTICALS
  Company Number: 2024A190167

PATIENT
  Age: 82 Year
  Sex: Male

DRUGS (9)
  1. ANDEXXA [Suspect]
     Active Substance: ANDEXANET ALFA
     Indication: Haemorrhage
     Dosage: 400 MG IV AT A RATE OF 30 MG/MIN FOLLOWED BY 480 MG IV AT A RATE OF 4 MG/MIN, FREQUENCY: UNK
     Dates: start: 20240624, end: 20240624
  2. HEPARIN SODIUM [Concomitant]
     Active Substance: HEPARIN SODIUM
     Dosage: DOSE UNKNOWN
  3. HEPARIN SODIUM [Concomitant]
     Active Substance: HEPARIN SODIUM
     Dosage: DOSE UNKNOWN
     Route: 065
  4. HEPARIN SODIUM [Concomitant]
     Active Substance: HEPARIN SODIUM
     Dosage: DOSE UNKNOWN
     Route: 065
  5. EDOXABAN TOSYLATE [Concomitant]
     Active Substance: EDOXABAN TOSYLATE
     Indication: Atrial tachycardia
     Dosage: DOSE UNKNOWN
     Route: 065
  6. ASPIRIN [Concomitant]
     Active Substance: ASPIRIN
     Indication: Atrial tachycardia
     Dosage: DOSE UNKNOWN
     Route: 065
  7. CARVEDILOL [Concomitant]
     Active Substance: CARVEDILOL
     Indication: Atrial tachycardia
  8. ATORVASTATIN [Concomitant]
     Active Substance: ATORVASTATIN
     Indication: Atrial tachycardia
  9. EDOXABAN [Concomitant]
     Active Substance: EDOXABAN
     Indication: Atrial tachycardia

REACTIONS (4)
  - Acute myocardial infarction [Fatal]
  - Heparin resistance [Fatal]
  - Pneumonia [Fatal]
  - Cardiogenic shock [Unknown]

NARRATIVE: CASE EVENT DATE: 20240101
